FAERS Safety Report 9905431 (Version 2)
Quarter: 2014Q2

REPORT INFORMATION
  Report Type: Spontaneous
  Country: NZ (occurrence: NZ)
  Receive Date: 20140218
  Receipt Date: 20140528
  Transmission Date: 20141212
  Serious: Yes (Hospitalization)
  Sender: FDA-Public Use
  Company Number: NZ-B.I. PHARMACEUTICALS,INC./RIDGEFIELD-2014-BI-06444AU

PATIENT
  Age: 80 Year
  Sex: Female
  Weight: 77 kg

DRUGS (6)
  1. PRADAXA [Suspect]
     Indication: ATRIAL FIBRILLATION
     Dosage: 220 MG
     Route: 065
     Dates: start: 20130503, end: 20131006
  2. ATORVASTATIN [Concomitant]
     Dosage: 40 MG
     Route: 065
  3. LISINOPRIL [Concomitant]
     Dosage: 40 MG
     Route: 065
  4. DILTIAZEM [Concomitant]
     Dosage: 360 MG
     Route: 065
  5. ANNUSOL [Concomitant]
     Route: 065
  6. OMEPRAZOLE [Concomitant]
     Dosage: 40 MG
     Route: 065

REACTIONS (5)
  - Colitis ischaemic [Recovered/Resolved]
  - Malaise [Unknown]
  - Body temperature increased [Unknown]
  - Abdominal pain [Unknown]
  - Abdominal distension [Unknown]
